FAERS Safety Report 7497387-2 (Version None)
Quarter: 2011Q2

REPORT INFORMATION
  Report Type: 
  Country: None (occurrence: None)
  Receive Date: 20110523
  Receipt Date: 20110516
  Transmission Date: 20111010
  Serious: Yes (Hospitalization)
  Sender: FDA-Public Use
  Company Number: JP-CEPHALON-2011002517

PATIENT
  Sex: Female

DRUGS (13)
  1. RITUXIMAB [Suspect]
     Indication: DIFFUSE LARGE B-CELL LYMPHOMA
     Route: 042
     Dates: start: 20110322, end: 20110322
  2. BETAMETHASONE VALERATE [Concomitant]
     Dates: start: 20110403
  3. ALLOPURINOL [Concomitant]
     Dates: start: 20110322
  4. AMLODIPINE [Concomitant]
     Dates: start: 20060101
  5. NEO-MINOPHAGEN C [Concomitant]
     Dates: start: 20110422
  6. BENDAMUSTINE HCL [Suspect]
     Indication: DIFFUSE LARGE B-CELL LYMPHOMA
     Route: 042
     Dates: start: 20110323, end: 20110324
  7. RITUXIMAB [Suspect]
     Route: 042
     Dates: start: 20110412, end: 20110412
  8. DERMOVATE [Concomitant]
     Dates: start: 20110403
  9. LANSOPRAZOLE [Concomitant]
     Dates: start: 20110322
  10. ZOVIRAX [Concomitant]
     Dates: start: 20110322
  11. BENDAMUSTINE HCL [Suspect]
     Route: 042
     Dates: start: 20110413, end: 20110414
  12. SULFAMETHOXAZOLE [Concomitant]
     Dates: start: 20110322
  13. FLUCONAZOLE [Concomitant]
     Dates: start: 20110322

REACTIONS (1)
  - CYTOMEGALOVIRUS INFECTION [None]
